FAERS Safety Report 15211204 (Version 1)
Quarter: 2018Q3

REPORT INFORMATION
  Report Type: Spontaneous
  Country: US (occurrence: US)
  Receive Date: 20180630
  Receipt Date: 20180630
  Transmission Date: 20181010
  Serious: Yes (Other)
  Sender: FDA-Public Use
  Company Number: None

PATIENT
  Age: 63 Year
  Sex: Female

DRUGS (1)
  1. LANCOME PARIS BIENFAIT MULTIVITAL BS SPF30 SUNSCREEN 24HR MOISTUR/ANTIOX/VITAMIN [Suspect]
     Active Substance: AVOBENZONE\OCTISALATE\OCTOCRYLENE
     Indication: DRY SKIN
     Dosage: ?          QUANTITY:1 CREAM;?
     Route: 061
     Dates: start: 20180608, end: 20180608

REACTIONS (2)
  - Ocular hyperaemia [None]
  - Eye irritation [None]

NARRATIVE: CASE EVENT DATE: 20180608
